FAERS Safety Report 15611871 (Version 2)
Quarter: 2018Q4

REPORT INFORMATION
  Report Type: Spontaneous
  Country: US (occurrence: US)
  Receive Date: 20181113
  Receipt Date: 20181127
  Transmission Date: 20190205
  Serious: Yes (Other)
  Sender: FDA-Public Use
  Company Number: US-MYLANLABS-2018M1084764

PATIENT

DRUGS (6)
  1. FENTANYL. [Suspect]
     Active Substance: FENTANYL
     Indication: ANAESTHESIA
     Route: 064
  2. MAGNESIUM [Suspect]
     Active Substance: MAGNESIUM
     Indication: TOCOLYSIS
     Dosage: 6 GRAM
     Route: 064
  3. MAGNESIUM [Suspect]
     Active Substance: MAGNESIUM
     Dosage: 2 GRAM, QH
     Route: 064
  4. VECURONIUM [Suspect]
     Active Substance: VECURONIUM BROMIDE
     Indication: ANAESTHESIA
     Route: 064
  5. SEVOFLURANE. [Suspect]
     Active Substance: SEVOFLURANE
     Indication: GENERAL ANAESTHESIA
     Route: 064
  6. ATROPINE. [Suspect]
     Active Substance: ATROPINE
     Indication: ANAESTHESIA
     Dosage: 20 MICROGRAM/KILOGRAM
     Route: 050

REACTIONS (3)
  - Bradycardia foetal [Recovered/Resolved]
  - Condition aggravated [Recovered/Resolved]
  - Foetal exposure during pregnancy [Recovered/Resolved]
